FAERS Safety Report 5076673-X (Version None)
Quarter: 2006Q3

REPORT INFORMATION
  Report Type: 
  Country: None (occurrence: None)
  Receive Date: 20060810
  Receipt Date: 20060801
  Transmission Date: 20061208
  Serious: Yes (Other)
  Sender: FDA-Public Use
  Company Number: PHRM2006FR02279

PATIENT
  Age: 73 Year
  Sex: Male

DRUGS (3)
  1. SINTROM [Concomitant]
     Route: 048
  2. DILTIAZEM [Concomitant]
  3. TAREG [Suspect]
     Indication: HYPERTENSION
     Dosage: 80 MG, QD
     Route: 048
     Dates: start: 20050101

REACTIONS (2)
  - EYE OEDEMA [None]
  - MACULAR DEGENERATION [None]
